FAERS Safety Report 5684254-X (Version None)
Quarter: 2008Q1

REPORT INFORMATION
  Report Type: 
  Country: None (occurrence: None)
  Receive Date: 20080328
  Receipt Date: 20071031
  Transmission Date: 20080703
  Serious: Yes (Hospitalization)
  Sender: FDA-Public Use
  Company Number: US-AMGEN-QUU248325

PATIENT
  Sex: Female
  Weight: 58.1 kg

DRUGS (10)
  1. NEULASTA [Suspect]
     Indication: CHEMOTHERAPY
     Route: 058
     Dates: start: 20070824
  2. RITUXIMAB [Suspect]
     Route: 065
     Dates: start: 20070824
  3. CYCLOPHOSPHAMIDE [Suspect]
     Route: 065
     Dates: start: 20070824
  4. DOXORUBICIN HYDROCHLORIDE [Suspect]
     Route: 065
     Dates: start: 20070824
  5. VINCRISTINE [Suspect]
     Route: 065
     Dates: start: 20070824
  6. PREDNISOLONE [Suspect]
     Route: 065
     Dates: start: 20070824
  7. LEVAQUIN [Concomitant]
     Route: 065
  8. LIPITOR [Concomitant]
     Route: 065
  9. COENZYME Q10 [Concomitant]
     Route: 065
  10. DULCOLAX [Concomitant]
     Route: 065

REACTIONS (6)
  - ALOPECIA [None]
  - ASTHENIA [None]
  - CONSTIPATION [None]
  - NEUTROPENIA [None]
  - PYREXIA [None]
  - WEIGHT DECREASED [None]
